FAERS Safety Report 5550582-1 (Version None)
Quarter: 2007Q4

REPORT INFORMATION
  Report Type: 
  Country: None (occurrence: None)
  Receive Date: 20071212
  Receipt Date: 20071127
  Transmission Date: 20080405
  Serious: Yes (Life-Threatening, Hospitalization)
  Sender: FDA-Public Use
  Company Number: NL-ELI_LILLY_AND_COMPANY-NL200711006179

PATIENT
  Sex: Male

DRUGS (3)
  1. SOMATROPIN [Suspect]
     Indication: GROWTH HORMONE DEFICIENCY
     Dosage: 0.2 MG, UNK
     Route: 058
     Dates: start: 19960614
  2. LEVOTHYROXINE SODIUM [Concomitant]
     Indication: SECONDARY HYPOTHYROIDISM
     Dates: start: 19960101
  3. ANDROGEL [Concomitant]
     Indication: SECONDARY HYPOGONADISM
     Dates: start: 20040101

REACTIONS (1)
  - SECONDARY ADRENOCORTICAL INSUFFICIENCY [None]
